FAERS Safety Report 4658022-1 (Version None)
Quarter: 2005Q2

REPORT INFORMATION
  Report Type: 
  Country: None (occurrence: None)
  Receive Date: 20050505
  Receipt Date: 20050315
  Transmission Date: 20051028
  Serious: No
  Sender: FDA-Public Use
  Company Number: 2005USFACT00408

PATIENT
  Age: 62 Year
  Sex: Male
  Weight: 112.5 kg

DRUGS (8)
  1. FACTIVE [Suspect]
     Indication: RESPIRATORY TRACT INFECTION BACTERIAL
     Dosage: 320.00 MG, QD, ORAL
     Route: 048
     Dates: start: 20050312, end: 20050301
  2. SYNTHROID [Concomitant]
  3. ASPIRIN [Concomitant]
  4. ACCUPRIL [Concomitant]
  5. VERAPAMIL [Concomitant]
  6. GLUCOPHAGE [Concomitant]
  7. AVANDIA [Concomitant]
  8. ANTIBIOTIC INFUSION [Concomitant]

REACTIONS (1)
  - DIARRHOEA [None]
